FAERS Safety Report 23316119 (Version 2)
Quarter: 2024Q1

REPORT INFORMATION
  Report Type: Spontaneous
  Country: BR (occurrence: BR)
  Receive Date: 20231219
  Receipt Date: 20240108
  Transmission Date: 20240410
  Serious: Yes (Death, Other)
  Sender: FDA-Public Use
  Company Number: BR-ELI_LILLY_AND_COMPANY-BR202312008120

PATIENT
  Sex: Female

DRUGS (2)
  1. BASAGLAR [Suspect]
     Active Substance: INSULIN GLARGINE
     Indication: Diabetes mellitus
     Dosage: UNK UNK, UNKNOWN
     Route: 065
  2. HUMALOG [Suspect]
     Active Substance: INSULIN LISPRO
     Indication: Diabetes mellitus
     Dosage: UNK UNK, UNKNOWN
     Route: 065

REACTIONS (8)
  - Pneumonia bacterial [Fatal]
  - Immunodeficiency [Fatal]
  - Device related infection [Unknown]
  - Renal failure [Unknown]
  - Gastrointestinal carcinoma [Unknown]
  - Retinal detachment [Unknown]
  - Rectal adenocarcinoma [Unknown]
  - Diabetic nephropathy [Unknown]
